FAERS Safety Report 5268852-3 (Version None)
Quarter: 2007Q1

REPORT INFORMATION
  Report Type: 
  Country: None (occurrence: None)
  Receive Date: 20070313
  Receipt Date: 20070223
  Transmission Date: 20070707
  Serious: Yes (Death)
  Sender: FDA-Public Use
  Company Number: 2007000359

PATIENT
  Age: 76 Year
  Sex: Male

DRUGS (7)
  1. ERLOTINIB (TABLET) [Suspect]
     Indication: NON-SMALL CELL LUNG CANCER
     Dosage: 150 MG (QD), ORAL
     Route: 048
     Dates: start: 20060424, end: 20060619
  2. FENTANYL [Concomitant]
  3. LACTULOSE [Concomitant]
  4. PAROXETINE [Concomitant]
  5. PREDNISONE TAB [Concomitant]
  6. ESOMEPRAZOLE (ESOMEPRAZOLE) [Concomitant]
  7. PHENOBARBITAL TAB [Concomitant]

REACTIONS (1)
  - DISEASE PROGRESSION [None]
